FAERS Safety Report 8430046-8 (Version None)
Quarter: 2012Q2

REPORT INFORMATION
  Report Type: 
  Country: None (occurrence: None)
  Receive Date: 20120612
  Receipt Date: 20120604
  Transmission Date: 20120825
  Serious: Yes (Hospitalization)
  Sender: FDA-Public Use
  Company Number: BR-BAYER-2012-056004

PATIENT

DRUGS (1)
  1. MOXIFLOXACIN [Suspect]
     Route: 048

REACTIONS (1)
  - ADVERSE EVENT [None]
